FAERS Safety Report 5280429-2 (Version None)
Quarter: 2007Q1

REPORT INFORMATION
  Report Type: 
  Country: None (occurrence: None)
  Receive Date: 20061229
  Receipt Date: 20061002
  Transmission Date: 20070707
  Serious: Yes (Other)
  Sender: FDA-Public Use
  Company Number: 2006UW19057

PATIENT
  Age: 77 Year
  Sex: Female
  Weight: 62.595 kg

DRUGS (5)
  1. CRESTOR [Suspect]
     Indication: BLOOD CHOLESTEROL INCREASED
     Dosage: 5 MG HS PO
     Route: 048
     Dates: start: 20060925
  2. SPIRIVA [Suspect]
  3. ADVAIR DISKUS 100/50 [Concomitant]
  4. ASPIRIN [Concomitant]
  5. ATROVENT [Concomitant]

REACTIONS (3)
  - DIZZINESS [None]
  - TREMOR [None]
  - VISION BLURRED [None]
